FAERS Safety Report 4865994-9 (Version None)
Quarter: 2005Q4

REPORT INFORMATION
  Report Type: 
  Country: None (occurrence: None)
  Receive Date: 20051221
  Receipt Date: 20051208
  Transmission Date: 20060501
  Serious: Yes (Other)
  Sender: FDA-Public Use
  Company Number: B0402973A

PATIENT
  Age: 32 Year
  Sex: Female

DRUGS (4)
  1. AMOX.TRIHYD+POT.CLAVULAN. (AMOX.TRIHYD+POT.CLAVULAN.) [Suspect]
  2. LEVOFLOXACIN [Concomitant]
  3. CLARITHROMYCIN [Concomitant]
  4. DOXYCYCLINE [Concomitant]

REACTIONS (8)
  - ABORTION INCOMPLETE [None]
  - ACCIDENTAL EXPOSURE [None]
  - CONDITION AGGRAVATED [None]
  - DRUG EXPOSURE DURING PREGNANCY [None]
  - INTRA-UTERINE DEATH [None]
  - PLACENTAL DISORDER [None]
  - RESPIRATORY TRACT INFECTION [None]
  - SEPSIS [None]
